FAERS Safety Report 5256516-1 (Version None)
Quarter: 2007Q1

REPORT INFORMATION
  Report Type: 
  Country: None (occurrence: None)
  Receive Date: 20070306
  Receipt Date: 20070223
  Transmission Date: 20070707
  Serious: No
  Sender: FDA-Public Use
  Company Number: PHBS2007JP02527

PATIENT
  Age: 74 Year
  Sex: Female

DRUGS (2)
  1. TEGRETOL [Suspect]
     Indication: CONVULSION
     Dosage: 1.6 G/DAY
     Route: 048
     Dates: end: 20070206
  2. TEGRETOL [Suspect]
     Dosage: 2 G/DAY
     Route: 048
     Dates: start: 20070207

REACTIONS (2)
  - CONVULSION [None]
  - DRUG LEVEL DECREASED [None]
